FAERS Safety Report 4402863-2 (Version None)
Quarter: 2004Q3

REPORT INFORMATION
  Report Type: 
  Country: None (occurrence: None)
  Receive Date: 20040721
  Receipt Date: 20040715
  Transmission Date: 20050211
  Serious: Yes (Other)
  Sender: FDA-Public Use
  Company Number: 200416987GDDC

PATIENT
  Age: 2 Year
  Sex: Female

DRUGS (3)
  1. CEFOTAXIME [Suspect]
     Indication: PNEUMONIA
     Route: 042
     Dates: start: 20040608, end: 20040608
  2. ALBUTEROL SULFATE [Concomitant]
     Route: 055
     Dates: start: 20040608
  3. HYDROCORTISONE [Concomitant]
     Indication: ASTHMA
     Route: 042
     Dates: start: 20040608, end: 20040609

REACTIONS (2)
  - CHILLS [None]
  - TACHYCARDIA [None]
